FAERS Safety Report 8275413-0 (Version None)
Quarter: 2012Q2

REPORT INFORMATION
  Report Type: 
  Country: None (occurrence: None)
  Receive Date: 20120411
  Receipt Date: 20120330
  Transmission Date: 20120825
  Serious: Yes (Hospitalization, Other)
  Sender: FDA-Public Use
  Company Number: BR-ELI_LILLY_AND_COMPANY-BR201111007068

PATIENT
  Age: 57 Year
  Sex: Male

DRUGS (8)
  1. LIPITOR [Concomitant]
     Indication: PROPHYLAXIS
     Dosage: 40 MG, QD
     Route: 065
  2. SOMALGIN [Concomitant]
     Dosage: UNK, QD
     Route: 065
  3. BYETTA [Suspect]
     Indication: TYPE 2 DIABETES MELLITUS
     Dosage: UNK, UNKNOWN
     Route: 065
     Dates: start: 20090101
  4. CIPROFIBRATE [Concomitant]
     Indication: HYPERTENSION
     Dosage: 100 MG, BID
     Route: 065
  5. ALDACTONE [Concomitant]
     Dosage: 25 MG, UNKNOWN
     Route: 065
  6. LEVEMIR [Concomitant]
     Dosage: UNK, UNKNOWN
     Route: 065
  7. CLOPIDOGREL [Concomitant]
     Indication: CARDIAC DISORDER
     Dosage: UNK, QD
     Route: 065
  8. APIDRA [Concomitant]
     Dosage: UNK, UNKNOWN
     Route: 065

REACTIONS (4)
  - LEARNING DISORDER [None]
  - OFF LABEL USE [None]
  - CEREBROVASCULAR ACCIDENT [None]
  - INCORRECT STORAGE OF DRUG [None]
